FAERS Safety Report 7369777-X (Version None)
Quarter: 2011Q1

REPORT INFORMATION
  Report Type: 
  Country: None (occurrence: None)
  Receive Date: 20110323
  Receipt Date: 20110315
  Transmission Date: 20110831
  Serious: Yes (Death, Other)
  Sender: FDA-Public Use
  Company Number: CN-GENZYME-CERZ-1001895

PATIENT
  Sex: Male
  Weight: 20 kg

DRUGS (5)
  1. CEREZYME [Suspect]
     Dosage: 53 U/KG, Q4W
     Route: 042
     Dates: start: 20090801, end: 20091001
  2. CEREZYME [Suspect]
     Dosage: 50 U/KG, Q2W
     Route: 042
     Dates: start: 20050101, end: 20090801
  3. CEREZYME [Suspect]
     Dosage: 40 U/KG, Q4W
     Route: 042
     Dates: start: 20091101, end: 20100101
  4. VALPROATE SODIUM [Concomitant]
     Indication: CONVULSION
     Dosage: 1 DF, QD
     Dates: start: 20100501, end: 20110223
  5. CEREZYME [Suspect]
     Indication: GAUCHER'S DISEASE
     Dosage: 60 U/KG, Q4W
     Route: 042
     Dates: start: 20100801, end: 20110101

REACTIONS (2)
  - CONVULSION [None]
  - TREMOR [None]
